FAERS Safety Report 24965920 (Version 3)
Quarter: 2025Q1

REPORT INFORMATION
  Report Type: Report from Study
  Country: US (occurrence: US)
  Receive Date: 20250213
  Receipt Date: 20250329
  Transmission Date: 20250409
  Serious: Yes (Death, Other)
  Sender: TAKEDA
  Company Number: US-TAKEDA-2022TUS083747

PATIENT
  Age: 79 Year
  Sex: Female
  Weight: 81 kg

DRUGS (5)
  1. IXAZOMIB [Suspect]
     Active Substance: IXAZOMIB
     Indication: Plasma cell myeloma recurrent
  2. IXAZOMIB [Suspect]
     Active Substance: IXAZOMIB
     Indication: Dyspnoea
  3. IXAZOMIB [Suspect]
     Active Substance: IXAZOMIB
  4. IXAZOMIB [Suspect]
     Active Substance: IXAZOMIB
  5. IXAZOMIB [Suspect]
     Active Substance: IXAZOMIB

REACTIONS (5)
  - Road traffic accident [Fatal]
  - Malaise [Unknown]
  - Off label use [Unknown]
  - Product dose omission issue [Recovered/Resolved]
  - Asthenia [Unknown]

NARRATIVE: CASE EVENT DATE: 20240925
